FAERS Safety Report 4901323-X (Version None)
Quarter: 2006Q1

REPORT INFORMATION
  Report Type: 
  Country: None (occurrence: None)
  Receive Date: 20060206
  Receipt Date: 20060131
  Transmission Date: 20060701
  Serious: Yes (Hospitalization)
  Sender: FDA-Public Use
  Company Number: PHHO2006CA01776

PATIENT
  Age: 54 Year
  Sex: Male
  Weight: 71 kg

DRUGS (8)
  1. LOPRESSOR [Suspect]
     Dosage: 100 MG, QD
     Route: 048
     Dates: start: 20051128, end: 20051209
  2. BIVALIRUDIN [Concomitant]
     Indication: ACUTE CORONARY SYNDROME
     Dosage: 1.4 ML, UNK
     Route: 042
     Dates: start: 20051123
  3. ABCIXIMAB [Concomitant]
     Indication: ACUTE CORONARY SYNDROME
     Dosage: 9 CC/C
     Route: 042
     Dates: start: 20051124
  4. ATORVASTATIN CALCIUM [Concomitant]
  5. ASPIRIN [Concomitant]
  6. CLOPIDOGREL [Concomitant]
  7. NITROGLYCERIN [Concomitant]
  8. INDOMETHACIN [Concomitant]

REACTIONS (4)
  - CONDITION AGGRAVATED [None]
  - CONDUCTION DISORDER [None]
  - DIZZINESS [None]
  - SICK SINUS SYNDROME [None]
